FAERS Safety Report 6660400-6 (Version None)
Quarter: 2010Q1

REPORT INFORMATION
  Report Type: 
  Country: None (occurrence: None)
  Receive Date: 20100330
  Receipt Date: 20100330
  Transmission Date: 20100710
  Serious: No
  Sender: FDA-Public Use
  Company Number: None

PATIENT

DRUGS (2)
  1. REMICADE [Suspect]
     Dates: start: 20090601
  2. FOSAMAX [Suspect]

REACTIONS (4)
  - BONE DISORDER [None]
  - MALAISE [None]
  - NEOPLASM MALIGNANT [None]
  - WEIGHT DECREASED [None]
